FAERS Safety Report 9939840 (Version 1)
Quarter: 2014Q1

REPORT INFORMATION
  Report Type: Report from Study
  Country: US (occurrence: US)
  Receive Date: 20140303
  Receipt Date: 20140303
  Transmission Date: 20141002
  Serious: No
  Sender: FDA-Public Use
  Company Number: US-ABBVIE-13P-163-1036304-00

PATIENT
  Age: 69 Year
  Sex: Female

DRUGS (11)
  1. HUMIRA [Suspect]
     Indication: CROHN^S DISEASE
     Dates: start: 20121207
  2. HUMIRA [Suspect]
     Dates: start: 20121221
  3. HUMIRA [Suspect]
     Dates: start: 20130104
  4. PREDNISONE [Suspect]
     Indication: PRODUCT USED FOR UNKNOWN INDICATION
  5. SINGULAIR [Concomitant]
     Indication: ASTHMA
  6. FUROSEMIDE [Concomitant]
     Indication: HYPERTENSION
  7. BABY ASPIRIN [Concomitant]
     Indication: CEREBROVASCULAR ACCIDENT
     Dosage: 1 TABLET DAILY
  8. OMEPRAZOLE [Concomitant]
     Indication: GASTRIC ULCER
  9. LISINOPRIL [Concomitant]
     Indication: HYPERTENSION
  10. PULMICORT [Concomitant]
     Indication: ASTHMA
     Dosage: 2 INHALATIONS
  11. PROAIR [Concomitant]
     Indication: ASTHMA

REACTIONS (1)
  - Injection site pain [Recovered/Resolved]
